FAERS Safety Report 14417829 (Version 2)
Quarter: 2018Q1

REPORT INFORMATION
  Report Type: Spontaneous
  Country: US (occurrence: US)
  Receive Date: 20180122
  Receipt Date: 20180206
  Transmission Date: 20180509
  Serious: Yes (Death)
  Sender: FDA-Public Use
  Company Number: US-JNJFOC-20180123183

PATIENT
  Sex: Male
  Weight: 59 kg

DRUGS (9)
  1. PLAQUENIL [Concomitant]
     Active Substance: HYDROXYCHLOROQUINE SULFATE
  2. LISINOPRIL. [Concomitant]
     Active Substance: LISINOPRIL
  3. METOPROLOL TARTRATE. [Concomitant]
     Active Substance: METOPROLOL TARTRATE
  4. IMBRUVICA [Suspect]
     Active Substance: IBRUTINIB
     Indication: MANTLE CELL LYMPHOMA
     Route: 048
     Dates: start: 20171208
  5. MULTIVITAMINS [Concomitant]
     Active Substance: VITAMINS
  6. OMEPRAZOLE. [Concomitant]
     Active Substance: OMEPRAZOLE
  7. SINGULAIR [Concomitant]
     Active Substance: MONTELUKAST SODIUM
  8. BACTRIM [Concomitant]
     Active Substance: SULFAMETHOXAZOLE\TRIMETHOPRIM
  9. LASIX [Concomitant]
     Active Substance: FUROSEMIDE

REACTIONS (1)
  - Cardiac failure congestive [Fatal]
